FAERS Safety Report 18206800 (Version 1)
Quarter: 2020Q3

REPORT INFORMATION
  Report Type: Spontaneous
  Country: US (occurrence: US)
  Receive Date: 20200827
  Receipt Date: 20200827
  Transmission Date: 20201103
  Serious: Yes (Hospitalization)
  Sender: FDA-Public Use
  Company Number: None

PATIENT
  Age: 65 Year
  Sex: Female

DRUGS (2)
  1. SOFOS/VELPAT [Suspect]
     Active Substance: SOFOSBUVIR\VELPATASVIR
     Indication: HEPATITIS C
     Route: 048
     Dates: start: 20200623
  2. SOFOS/VELPAT [Suspect]
     Active Substance: SOFOSBUVIR\VELPATASVIR
     Indication: HEPATITIS VIRAL
     Route: 048
     Dates: start: 20200623

REACTIONS (4)
  - Therapy interrupted [None]
  - Hip fracture [None]
  - Pain [None]
  - Transient ischaemic attack [None]

NARRATIVE: CASE EVENT DATE: 20200826
